FAERS Safety Report 6693761 (Version 2)
Quarter: 2012Q4

REPORT INFORMATION
  Report Type: 
  Country: CA (occurrence: CA)
  Receive Date: 20080708
  Receipt Date: 20121011
  Transmission Date: 20130627
  Serious: Yes (Hospitalization)
  Sender: FDA-Public Use
  Company Number: CA-PFIZER INC-2008053649

PATIENT
  Age: 42 Year
  Sex: Female
  Weight: 109 kg

DRUGS (1)
  1. SUTENT [Suspect]
     Indication: CERVIX CANCER METASTATIC
     Dosage: 50 mg, daily for 4 weeks
     Route: 048
     Dates: start: 20071106, end: 20080107

REACTIONS (1)
  - Gastrointestinal fistula [Not Recovered/Not Resolved]
